FAERS Safety Report 6463958-5 (Version None)
Quarter: 2009Q4

REPORT INFORMATION
  Report Type: 
  Country: None (occurrence: None)
  Receive Date: 20091201
  Receipt Date: 20091123
  Transmission Date: 20100525
  Serious: Yes (Other)
  Sender: FDA-Public Use
  Company Number: CN-JNJFOC-20091107440

PATIENT
  Age: 41 Year
  Sex: Female

DRUGS (4)
  1. GYNO-DAKTARIN [Suspect]
     Route: 067
     Dates: start: 20091001, end: 20091001
  2. GYNO-DAKTARIN [Suspect]
     Indication: VULVOVAGINAL CANDIDIASIS
     Dosage: FOR 7 NIGHTS
     Route: 067
     Dates: start: 20091001, end: 20091001
  3. GYNO-DAKTARIN [Suspect]
     Route: 061
     Dates: start: 20091001, end: 20091110
  4. GYNO-DAKTARIN [Suspect]
     Route: 061
     Dates: start: 20091001, end: 20091110

REACTIONS (2)
  - HYPOAESTHESIA [None]
  - SWELLING [None]
